FAERS Safety Report 4332135-6 (Version None)
Quarter: 2004Q1

REPORT INFORMATION
  Report Type: 
  Country: None (occurrence: None)
  Receive Date: 20040329
  Receipt Date: 20040317
  Transmission Date: 20041129
  Serious: Yes (Death)
  Sender: FDA-Public Use
  Company Number: 163-20785-03080019

PATIENT
  Age: 70 Year
  Sex: Male

DRUGS (1)
  1. THALOMID [Suspect]
     Indication: GASTROINTESTINAL STROMAL TUMOUR
     Dosage: 50-200 MG, QHS. ORAL
     Route: 048
     Dates: start: 20020722, end: 20030520

REACTIONS (1)
  - LEIOMYOSARCOMA METASTATIC [None]
